FAERS Safety Report 4267972-X (Version None)
Quarter: 2004Q1

REPORT INFORMATION
  Report Type: 
  Country: None (occurrence: None)
  Receive Date: 20040107
  Receipt Date: 20030304
  Transmission Date: 20041129
  Serious: No
  Sender: FDA-Public Use
  Company Number: 2002UW15506

PATIENT
  Age: 52 Year
  Sex: Male
  Weight: 104.3273 kg

DRUGS (1)
  1. DIPRIVAN [Suspect]
     Indication: SEDATION
     Dates: start: 20021027

REACTIONS (1)
  - METABOLIC ACIDOSIS [None]
